FAERS Safety Report 9133466 (Version 1)
Quarter: 2013Q1

REPORT INFORMATION
  Report Type: Spontaneous
  Country: US (occurrence: US)
  Receive Date: 20130123
  Receipt Date: 20130123
  Transmission Date: 20140127
  Serious: Yes (Other)
  Sender: FDA-Public Use
  Company Number: US-RB-048918-13

PATIENT
  Age: 78 Year
  Sex: Female

DRUGS (2)
  1. MUCINEX DM [Suspect]
     Indication: PRODUCT USED FOR UNKNOWN INDICATION
     Route: 048
     Dates: start: 20130112
  2. MUCINEX DM [Suspect]

REACTIONS (1)
  - Blood pressure increased [Unknown]
